FAERS Safety Report 6637937-9 (Version None)
Quarter: 2010Q1

REPORT INFORMATION
  Report Type: 
  Country: None (occurrence: None)
  Receive Date: 20100317
  Receipt Date: 20100309
  Transmission Date: 20100710
  Serious: Yes (Hospitalization)
  Sender: FDA-Public Use
  Company Number: PHHO2010GB03790

PATIENT
  Age: 76 Year
  Sex: Male

DRUGS (8)
  1. ZOLEDRONIC ACID [Suspect]
     Dosage: UNK
     Route: 042
     Dates: start: 20090420, end: 20090518
  2. SUTENT [Suspect]
     Indication: RENAL CANCER
     Dosage: 25 MG, UNK
     Route: 048
     Dates: start: 20060731, end: 20100202
  3. BENDROFLUMETHIAZIDE [Concomitant]
     Indication: HYPERTENSION
     Dosage: UNK
  4. DEXAMETHASONE [Concomitant]
     Indication: APPETITE DISORDER
     Dosage: UNK
  5. LEVOTHYROXINE SODIUM [Concomitant]
     Indication: HYPOTHYROIDISM
     Dosage: UNK
  6. CODEINE SULFATE [Concomitant]
     Indication: PAIN
     Dosage: UNK
  7. PARACETAMOL [Concomitant]
     Indication: PAIN
     Dosage: UNK
  8. OMEPRAZOLE [Concomitant]
     Dosage: UNK

REACTIONS (4)
  - DIARRHOEA [None]
  - OSTEONECROSIS [None]
  - SKIN ULCER [None]
  - TOOTH INFECTION [None]
